FAERS Safety Report 12978311 (Version 2)
Quarter: 2016Q4

REPORT INFORMATION
  Report Type: Spontaneous
  Country: US (occurrence: US)
  Receive Date: 20161128
  Receipt Date: 20161227
  Transmission Date: 20170207
  Serious: No
  Sender: FDA-Public Use
  Company Number: US-PFIZER INC-2016543123

PATIENT
  Age: 55 Year
  Sex: Female

DRUGS (19)
  1. CODEINE [Suspect]
     Active Substance: CODEINE
     Dosage: UNK
  2. LEVBID [Suspect]
     Active Substance: HYOSCYAMINE SULFATE
     Dosage: UNK
  3. MAXALT [Suspect]
     Active Substance: RIZATRIPTAN BENZOATE
  4. MYRBETRIQ [Suspect]
     Active Substance: MIRABEGRON
     Dosage: UNK
  5. NEURONTIN [Suspect]
     Active Substance: GABAPENTIN
  6. DARVOCET-N 100 [Suspect]
     Active Substance: ACETAMINOPHEN\PROPOXYPHENE NAPSYLATE
     Dosage: UNK
  7. ASPIRIN. [Suspect]
     Active Substance: ASPIRIN
     Dosage: UNK
  8. AUGMENTIN [Suspect]
     Active Substance: AMOXICILLIN\CLAVULANATE POTASSIUM
     Dosage: UNK
  9. NAPROSYN [Suspect]
     Active Substance: NAPROXEN
  10. CIPRO [Suspect]
     Active Substance: CIPROFLOXACIN HYDROCHLORIDE
  11. ESTROGENS CONJUGATED [Suspect]
     Active Substance: ESTROGENS, CONJUGATED
     Dosage: UNK
  12. HYDROCODONE [Suspect]
     Active Substance: HYDROCODONE
  13. MACROBID [Suspect]
     Active Substance: NITROFURANTOIN\NITROFURANTOIN MONOHYDRATE
     Dosage: UNK
  14. PAXIL [Suspect]
     Active Substance: PAROXETINE HYDROCHLORIDE
     Dosage: UNK
  15. ROCEPHIN [Suspect]
     Active Substance: CEFTRIAXONE SODIUM
  16. LEVAQUIN [Suspect]
     Active Substance: LEVOFLOXACIN
  17. MEXITIL [Suspect]
     Active Substance: MEXILETINE HYDROCHLORIDE
     Dosage: UNK
  18. TEGRETOL [Suspect]
     Active Substance: CARBAMAZEPINE
  19. ZONISAMIDE. [Suspect]
     Active Substance: ZONISAMIDE

REACTIONS (1)
  - Drug hypersensitivity [Unknown]
